FAERS Safety Report 7607642-0 (Version None)
Quarter: 2011Q3

REPORT INFORMATION
  Report Type: 
  Country: None (occurrence: None)
  Receive Date: 20110713
  Receipt Date: 20110411
  Transmission Date: 20111222
  Serious: Yes (Other)
  Sender: FDA-Public Use
  Company Number: PHHY2011US26657

PATIENT
  Sex: Female

DRUGS (9)
  1. PROPYLTHIOURACIL [Concomitant]
     Indication: HYPOTHYROIDISM
     Dosage: 20 MG, BID
  2. RECLAST [Suspect]
     Indication: OSTEOPOROSIS
     Dosage: 5 MG, ONCE A YEAR
     Route: 042
     Dates: start: 20110217
  3. MAGNESIUM [Concomitant]
  4. CALCITONIN SALMON [Suspect]
  5. FOSAMAX [Suspect]
  6. PROPRANOLOL [Concomitant]
     Indication: TREMOR
     Dosage: 20 MG, BID
  7. TEMAZEPAM [Concomitant]
     Indication: INSOMNIA
     Dosage: 15 MG, UNK
  8. ACTONEL [Suspect]
  9. CALCIUM AND ERGOCALCIFEROL [Concomitant]

REACTIONS (9)
  - NECK PAIN [None]
  - GAIT DISTURBANCE [None]
  - THYROID CANCER [None]
  - PAIN [None]
  - BALANCE DISORDER [None]
  - INFLUENZA LIKE ILLNESS [None]
  - THYROID DISORDER [None]
  - CALCINOSIS [None]
  - MALAISE [None]
